FAERS Safety Report 20412867 (Version 3)
Quarter: 2022Q1

REPORT INFORMATION
  Report Type: Spontaneous
  Country: FR (occurrence: FR)
  Receive Date: 20220201
  Receipt Date: 20220331
  Transmission Date: 20220423
  Serious: Yes (Life-Threatening, Hospitalization, Disabling)
  Sender: FDA-Public Use
  Company Number: None

PATIENT
  Age: 39 Year
  Sex: Male
  Weight: 78 kg

DRUGS (52)
  1. METHOTREXATE SODIUM [Suspect]
     Active Substance: METHOTREXATE SODIUM
     Indication: Behcet^s syndrome
     Dosage: 15 MG, WEEKLY
     Route: 048
     Dates: start: 2017, end: 2020
  2. METHOTREXATE SODIUM [Suspect]
     Active Substance: METHOTREXATE SODIUM
     Dosage: 20 MG, WEEKLY (ON FRIDAY)
     Route: 048
     Dates: start: 2020, end: 20211118
  3. SOLU-MEDROL [Suspect]
     Active Substance: METHYLPREDNISOLONE SODIUM SUCCINATE
     Indication: Behcet^s syndrome
     Dosage: UNK
     Route: 042
     Dates: start: 2012, end: 2012
  4. REMICADE [Suspect]
     Active Substance: INFLIXIMAB
     Indication: Behcet^s syndrome
     Dosage: UNK
     Route: 041
     Dates: start: 2010, end: 2012
  5. HUMIRA [Suspect]
     Active Substance: ADALIMUMAB
     Indication: Behcet^s syndrome
     Dosage: UNK
     Dates: start: 2015, end: 2019
  6. HUMIRA [Suspect]
     Active Substance: ADALIMUMAB
     Indication: Urinary tract disorder
     Dosage: INCREASED
  7. HUMIRA [Suspect]
     Active Substance: ADALIMUMAB
     Dosage: 40 MG, WEEKLY
     Dates: start: 2017
  8. HUMIRA [Suspect]
     Active Substance: ADALIMUMAB
     Dosage: 40 MG EVERY 2 WEEKS
     Dates: start: 2020
  9. HUMIRA [Suspect]
     Active Substance: ADALIMUMAB
     Dosage: 40 MG EVERY 2 WEEKS
     Dates: start: 2021
  10. HUMIRA [Suspect]
     Active Substance: ADALIMUMAB
     Dosage: 40 MG EVERY 2 WEEKS
     Route: 058
     Dates: start: 2017, end: 20211118
  11. COLCHICINE\OPIUM\TIEMONIUM METHYLSULFATE [Suspect]
     Active Substance: COLCHICINE\OPIUM\TIEMONIUM METHYLSULFATE
     Indication: Behcet^s syndrome
     Dosage: UNK
     Route: 048
     Dates: start: 2001, end: 2004
  12. PREDNISONE [Suspect]
     Active Substance: PREDNISONE
     Indication: Behcet^s syndrome
     Dosage: UNK
     Route: 048
     Dates: start: 2000, end: 2003
  13. PREDNISONE [Suspect]
     Active Substance: PREDNISONE
     Dosage: UNK
     Route: 048
     Dates: start: 2004, end: 2005
  14. PREDNISONE [Suspect]
     Active Substance: PREDNISONE
     Dosage: UNK
     Route: 048
     Dates: start: 2009, end: 2017
  15. AZATHIOPRINE [Suspect]
     Active Substance: AZATHIOPRINE
     Indication: Behcet^s syndrome
     Dosage: UNK
     Route: 048
     Dates: start: 2004, end: 2008
  16. SOLU-MEDROL [Concomitant]
     Active Substance: METHYLPREDNISOLONE SODIUM SUCCINATE
     Indication: Behcet^s syndrome
     Dosage: UNK
     Route: 042
     Dates: start: 200308
  17. CYCLOPHOSPHAMIDE [Concomitant]
     Active Substance: CYCLOPHOSPHAMIDE
     Indication: Behcet^s syndrome
     Dosage: UNK
     Route: 042
     Dates: start: 200308, end: 2004
  18. CYCLOPHOSPHAMIDE [Concomitant]
     Active Substance: CYCLOPHOSPHAMIDE
     Indication: Behcet^s syndrome
     Dosage: UNK
     Route: 042
     Dates: start: 200608, end: 2007
  19. CYCLOPHOSPHAMIDE [Concomitant]
     Active Substance: CYCLOPHOSPHAMIDE
     Dosage: UNK
     Dates: start: 2012
  20. CYCLOPHOSPHAMIDE [Concomitant]
     Active Substance: CYCLOPHOSPHAMIDE
     Dosage: INCREASED
     Dates: start: 2015
  21. CYCLOPHOSPHAMIDE [Concomitant]
     Active Substance: CYCLOPHOSPHAMIDE
     Dosage: UNK
  22. PREDNISONE [Concomitant]
     Active Substance: PREDNISONE
     Indication: Behcet^s syndrome
     Dosage: 1 MG/KG DAILY WITH GRADUAL DECREASE
     Route: 048
     Dates: start: 2000
  23. PREDNISONE [Concomitant]
     Active Substance: PREDNISONE
     Dosage: 30 MG, DAILY
     Route: 048
     Dates: start: 2004
  24. COLCHICINE [Concomitant]
     Active Substance: COLCHICINE
     Indication: Behcet^s syndrome
     Dosage: 1 MG, 1X/DAY
     Route: 048
     Dates: start: 2004
  25. COLCHICINE [Concomitant]
     Active Substance: COLCHICINE
     Indication: Pain in extremity
     Dosage: 2 MG, 1X/DAY
     Route: 048
     Dates: start: 2004
  26. COLCHICINE [Concomitant]
     Active Substance: COLCHICINE
     Dosage: 1 MG, 1X/DAY
     Route: 048
     Dates: start: 2009
  27. COLCHICINE [Concomitant]
     Active Substance: COLCHICINE
     Dosage: 1 MG, 1X/DAY
     Route: 048
     Dates: start: 2015
  28. COLCHICINE [Concomitant]
     Active Substance: COLCHICINE
     Dosage: 1 MG, 1X/DAY
     Route: 048
     Dates: start: 2017
  29. COLCHICINE [Concomitant]
     Active Substance: COLCHICINE
     Dosage: 1 MG, 1X/DAY
     Route: 048
     Dates: start: 2020
  30. COLCHICINE [Concomitant]
     Active Substance: COLCHICINE
     Dosage: 1 MG, 1X/DAY
     Route: 048
     Dates: start: 2021
  31. COLCHICINE [Concomitant]
     Active Substance: COLCHICINE
     Route: 048
     Dates: start: 2004
  32. AZATHIOPRINE [Concomitant]
     Active Substance: AZATHIOPRINE
     Indication: Behcet^s syndrome
     Dosage: 150 MG, 1X/DAY
     Route: 048
     Dates: start: 2004
  33. ZOLOFT [Concomitant]
     Active Substance: SERTRALINE HYDROCHLORIDE
     Indication: Mixed anxiety and depressive disorder
     Dosage: 50 MG, 1X/DAY
     Route: 048
     Dates: start: 2021
  34. TOVIAZ [Concomitant]
     Active Substance: FESOTERODINE FUMARATE
     Indication: Urinary incontinence
     Dosage: 8 MG, 1X/DAY
     Route: 048
     Dates: start: 2021
  35. BUSPIRONE HYDROCHLORIDE [Concomitant]
     Active Substance: BUSPIRONE HYDROCHLORIDE
     Indication: Mixed anxiety and depressive disorder
     Dosage: 10 MG, 2X/DAY, 12 HOURS
     Route: 048
     Dates: start: 2021
  36. OXAZEPAM [Concomitant]
     Active Substance: OXAZEPAM
     Indication: Mixed anxiety and depressive disorder
     Dosage: 10 MG, 1X/DAY
     Route: 048
  37. OXAZEPAM [Concomitant]
     Active Substance: OXAZEPAM
     Route: 048
  38. SULPIRIDE [Concomitant]
     Active Substance: SULPIRIDE
     Indication: Mixed anxiety and depressive disorder
     Dosage: 50 MG, 2X/DAY, 12 HOURS
     Route: 048
     Dates: start: 2021
  39. VESICARE [Concomitant]
     Active Substance: SOLIFENACIN SUCCINATE
     Indication: Urinary incontinence
     Dosage: 10 MG, 1X/DAY
     Route: 048
     Dates: start: 2021
  40. FERROUS SULFATE [Concomitant]
     Active Substance: FERROUS SULFATE
     Indication: Iron deficiency anaemia
     Dosage: UNK
     Route: 048
     Dates: start: 20211020
  41. METHOTREXATE [Concomitant]
     Active Substance: METHOTREXATE
     Indication: Behcet^s syndrome
     Dosage: 20 MG, WEEKLY
     Dates: start: 200307, end: 2004
  42. METHOTREXATE [Concomitant]
     Active Substance: METHOTREXATE
     Indication: Disease recurrence
  43. CALCIUM\CHOLECALCIFEROL [Concomitant]
     Active Substance: CALCIUM\CHOLECALCIFEROL
     Indication: Depressive symptom
     Dosage: UNK
     Dates: start: 2003
  44. CALCIUM\CHOLECALCIFEROL [Concomitant]
     Active Substance: CALCIUM\CHOLECALCIFEROL
     Dosage: UNK, 1X/DAY
     Dates: start: 2004
  45. PROZAC [Concomitant]
     Active Substance: FLUOXETINE HYDROCHLORIDE
     Indication: Depressive symptom
     Dosage: UNK
     Dates: start: 2003
  46. KARDEGIC [Concomitant]
     Active Substance: ASPIRIN DL-LYSINE
     Indication: Depressive symptom
     Dosage: UNK
     Dates: start: 2003
  47. KARDEGIC [Concomitant]
     Active Substance: ASPIRIN DL-LYSINE
     Indication: Pain in extremity
     Dosage: UNK
     Dates: start: 2009
  48. LERDEFOLINE [Concomitant]
     Indication: Depressive symptom
     Dosage: 5 MG, WEEKLY, ON SATURDAY
  49. SODIUM BICARBONATE [Concomitant]
     Active Substance: SODIUM BICARBONATE
     Dosage: 1 DF, 2X/DAY, 12 HOURS
     Route: 048
     Dates: start: 2021
  50. SOLIFENACIN [Concomitant]
     Active Substance: SOLIFENACIN
     Indication: Urinary incontinence
     Dosage: 10 MG, 1X/DAY
     Route: 048
  51. SERTRALINE HYDROCHLORIDE [Concomitant]
     Active Substance: SERTRALINE HYDROCHLORIDE
     Indication: Mixed anxiety and depressive disorder
     Dosage: 50 MG, 1X/DAY
     Route: 048
  52. SULPIRIDE [Concomitant]
     Active Substance: SULPIRIDE
     Dosage: 50 MG EVERY 12 HOURS
     Route: 048

REACTIONS (2)
  - Hodgkin^s disease [Not Recovered/Not Resolved]
  - Off label use [Unknown]

NARRATIVE: CASE EVENT DATE: 20211118
